FAERS Safety Report 5669883-1 (Version None)
Quarter: 2008Q1

REPORT INFORMATION
  Report Type: 
  Country: None (occurrence: None)
  Receive Date: 20080317
  Receipt Date: 20080305
  Transmission Date: 20080703
  Serious: Yes (Other)
  Sender: FDA-Public Use
  Company Number: GB-PFIZER INC-2008021172

PATIENT
  Age: 35 Year
  Sex: Female
  Weight: 62 kg

DRUGS (5)
  1. CHAMPIX [Suspect]
     Indication: SMOKING CESSATION THERAPY
     Route: 048
     Dates: start: 20080119, end: 20080129
  2. FOLIC ACID [Concomitant]
     Indication: CROHN'S DISEASE
     Route: 048
  3. HYDROXOCOBALAMIN [Concomitant]
     Indication: CROHN'S DISEASE
     Route: 030
  4. METHOTREXATE [Concomitant]
     Indication: CROHN'S DISEASE
     Route: 048
  5. MICROGYNON [Concomitant]
     Indication: CONTRACEPTION
     Route: 048

REACTIONS (1)
  - CROHN'S DISEASE [None]
